FAERS Safety Report 7805906-9 (Version None)
Quarter: 2011Q4

REPORT INFORMATION
  Report Type: 
  Country: None (occurrence: None)
  Receive Date: 20111011
  Receipt Date: 20110927
  Transmission Date: 20120403
  Serious: No
  Sender: FDA-Public Use
  Company Number: US-BIOGENIDEC-2011BI030135

PATIENT
  Age: 46 Year
  Sex: Female

DRUGS (5)
  1. AVONEX [Suspect]
     Indication: MULTIPLE SCLEROSIS
     Route: 030
     Dates: start: 20080908
  2. ALLERGY MEDICATION (NOS) [Concomitant]
     Indication: PREMEDICATION
  3. AVONEX [Suspect]
     Route: 030
     Dates: start: 20080908
  4. NAPROXEN [Concomitant]
     Indication: PREMEDICATION
  5. VENTOLIN [Concomitant]
     Indication: CHRONIC OBSTRUCTIVE PULMONARY DISEASE
     Route: 055

REACTIONS (7)
  - INFLUENZA LIKE ILLNESS [None]
  - INJECTION SITE STREAKING [None]
  - SENSORY DISTURBANCE [None]
  - INJECTION SITE PAIN [None]
  - FEELING COLD [None]
  - INJECTION SITE WARMTH [None]
  - INJECTION SITE MASS [None]
